FAERS Safety Report 9109557 (Version 1)
Quarter: 2013Q1

REPORT INFORMATION
  Report Type: Spontaneous
  Country: AU (occurrence: AU)
  Receive Date: 20130222
  Receipt Date: 20130222
  Transmission Date: 20140127
  Serious: Yes (Hospitalization)
  Sender: FDA-Public Use
  Company Number: AU-009507513-1302AUS009176

PATIENT
  Age: 16 Year
  Sex: Female

DRUGS (1)
  1. ROCURONIUM BROMIDE [Suspect]

REACTIONS (1)
  - Sinus tachycardia [Recovered/Resolved]
